FAERS Safety Report 8377396-1 (Version None)
Quarter: 2012Q2

REPORT INFORMATION
  Report Type: 
  Country: None (occurrence: None)
  Receive Date: 20120521
  Receipt Date: 20120505
  Transmission Date: 20120825
  Serious: Yes (Hospitalization)
  Sender: FDA-Public Use
  Company Number: 2012AP001358

PATIENT
  Age: 83 Year
  Sex: Female

DRUGS (1)
  1. HYZAAR [Suspect]
     Indication: HYPERTENSION
     Dosage: PO
     Route: 048

REACTIONS (9)
  - NON-CARDIOGENIC PULMONARY OEDEMA [None]
  - HYPERHIDROSIS [None]
  - ABDOMINAL PAIN [None]
  - HYPOTENSION [None]
  - RESPIRATORY FAILURE [None]
  - SINUS TACHYCARDIA [None]
  - HYPOXIA [None]
  - NAUSEA [None]
  - ELECTROCARDIOGRAM ST SEGMENT DEPRESSION [None]
